FAERS Safety Report 5244385-5 (Version None)
Quarter: 2007Q1

REPORT INFORMATION
  Report Type: 
  Country: None (occurrence: None)
  Receive Date: 20070222
  Receipt Date: 20070214
  Transmission Date: 20070707
  Serious: Yes (Hospitalization)
  Sender: FDA-Public Use
  Company Number: FR-PFIZER INC-2007012100

PATIENT
  Age: 69 Year
  Sex: Male

DRUGS (1)
  1. SULFASALAZINE [Suspect]
     Indication: ARTHRALGIA
     Route: 048
     Dates: start: 20060910, end: 20061221

REACTIONS (2)
  - AGRANULOCYTOSIS [None]
  - COLITIS [None]
